FAERS Safety Report 24393704 (Version 1)
Quarter: 2024Q4

REPORT INFORMATION
  Report Type: Spontaneous
  Country: US (occurrence: US)
  Receive Date: 20241003
  Receipt Date: 20241003
  Transmission Date: 20250114
  Serious: No
  Sender: NOVARTIS
  Company Number: US-002147023-NVSC2024US195139

PATIENT
  Age: 21 Year
  Sex: Male
  Weight: 79.365 kg

DRUGS (1)
  1. PROMACTA [Suspect]
     Active Substance: ELTROMBOPAG OLAMINE
     Indication: Thrombocytopenia
     Dosage: 75 MG, QD
     Route: 048
     Dates: start: 20240702

REACTIONS (4)
  - Joint dislocation [Unknown]
  - Myalgia [Unknown]
  - Arthralgia [Unknown]
  - Aura [Recovered/Resolved]

NARRATIVE: CASE EVENT DATE: 20240801
